FAERS Safety Report 7004691-0 (Version None)
Quarter: 2010Q3

REPORT INFORMATION
  Report Type: 
  Country: None (occurrence: None)
  Receive Date: 20100921
  Receipt Date: 20100909
  Transmission Date: 20110219
  Serious: Yes (Other)
  Sender: FDA-Public Use
  Company Number: PHHY2010AT57367

PATIENT
  Sex: Female

DRUGS (1)
  1. ACLASTA [Suspect]
     Dosage: UNK
     Dates: start: 20100801

REACTIONS (10)
  - ABSCESS [None]
  - BONE SWELLING [None]
  - DISCOMFORT [None]
  - HYPERHIDROSIS [None]
  - MYALGIA [None]
  - ORAL PAIN [None]
  - OROPHARYNGEAL PAIN [None]
  - OSTEONECROSIS OF JAW [None]
  - PAIN IN EXTREMITY [None]
  - PYREXIA [None]
